FAERS Safety Report 6599854-2 (Version None)
Quarter: 2010Q1

REPORT INFORMATION
  Report Type: 
  Country: None (occurrence: None)
  Receive Date: 20100217
  Receipt Date: 20100210
  Transmission Date: 20100710
  Serious: Yes (Life-Threatening, Hospitalization)
  Sender: FDA-Public Use
  Company Number: TPA2010A00500

PATIENT
  Age: 68 Year
  Sex: Male
  Weight: 90.2658 kg

DRUGS (8)
  1. PIOGLITAZONE HCL [Suspect]
     Indication: CARDIOVASCULAR EVENT PROPHYLAXIS
     Dosage: 1 IN 1 D, PER ORAL
     Route: 048
     Dates: start: 20061211, end: 20100122
  2. AMLODIPINE [Concomitant]
  3. ATENOLOL [Concomitant]
  4. WARFARIN SODIUM [Concomitant]
  5. EFFEXOR [Concomitant]
  6. DEPAKOTE [Concomitant]
  7. NIASPAN [Concomitant]
  8. SIMVASTATIN [Concomitant]

REACTIONS (3)
  - BLADDER DISORDER [None]
  - BLADDER TRANSITIONAL CELL CARCINOMA [None]
  - HAEMATURIA [None]
